FAERS Safety Report 9626714 (Version 1)
Quarter: 2013Q4

REPORT INFORMATION
  Report Type: Spontaneous
  Country: US (occurrence: US)
  Receive Date: 20131016
  Receipt Date: 20131016
  Transmission Date: 20140711
  Serious: No
  Sender: FDA-Public Use
  Company Number: US-TEVA-438361USA

PATIENT
  Sex: Female

DRUGS (4)
  1. NUVIGIL [Suspect]
  2. KEPPRA [Concomitant]
     Indication: CONVULSION
  3. SEROQUEL [Concomitant]
     Indication: ATTENTION DEFICIT/HYPERACTIVITY DISORDER
  4. CYMBALTA [Concomitant]
     Indication: DEPRESSION

REACTIONS (1)
  - Drug screen [Unknown]
